FAERS Safety Report 7825702-6 (Version None)
Quarter: 2011Q4

REPORT INFORMATION
  Report Type: 
  Country: None (occurrence: None)
  Receive Date: 20111019
  Receipt Date: 20111012
  Transmission Date: 20120403
  Serious: Yes (Death, Hospitalization)
  Sender: FDA-Public Use
  Company Number: US-CELGENEUS-163-21880-11083613

PATIENT
  Sex: Female
  Weight: 93.07 kg

DRUGS (7)
  1. REVLIMID [Suspect]
     Dosage: 10 MILLIGRAM
     Route: 048
     Dates: start: 20110810, end: 20110801
  2. ALLOPURINOL [Concomitant]
     Route: 065
  3. LEVOTHYROXINE SODIUM [Concomitant]
     Route: 065
  4. FLUCONAZOLE [Concomitant]
     Dosage: 1000 MILLIGRAM
     Route: 065
  5. METFORMIN HCL [Concomitant]
     Route: 065
  6. LEVOFLOXACIN [Concomitant]
     Indication: INFECTION PROPHYLAXIS
     Dosage: 500 MILLIGRAM
     Route: 065
  7. HYDREA [Concomitant]
     Dosage: 1000 MILLIGRAM
     Route: 065

REACTIONS (1)
  - ACUTE MYELOID LEUKAEMIA [None]
